FAERS Safety Report 7809130-5 (Version None)
Quarter: 2011Q4

REPORT INFORMATION
  Report Type: 
  Country: None (occurrence: None)
  Receive Date: 20111012
  Receipt Date: 20111003
  Transmission Date: 20120403
  Serious: Yes (Other)
  Sender: FDA-Public Use
  Company Number: US-JNJFOC-20111001331

PATIENT
  Age: 55 Year
  Sex: Male

DRUGS (3)
  1. STELARA [Suspect]
     Indication: PSORIASIS
     Route: 058
     Dates: start: 20110627
  2. STELARA [Suspect]
     Route: 058
     Dates: start: 20110601
  3. STELARA [Suspect]
     Route: 058
     Dates: start: 20110919

REACTIONS (1)
  - MYOCARDIAL INFARCTION [None]
